FAERS Safety Report 11943095 (Version 1)
Quarter: 2016Q1

REPORT INFORMATION
  Report Type: Spontaneous
  Country: US (occurrence: US)
  Receive Date: 20160125
  Receipt Date: 20160125
  Transmission Date: 20160526
  Serious: No
  Sender: FDA-Public Use
  Company Number: US-UNITED THERAPEUTICS-UNT-2015-013459

PATIENT
  Age: 41 Year
  Sex: Male
  Weight: 120.18 kg

DRUGS (3)
  1. ORENITRAM [Suspect]
     Active Substance: TREPROSTINIL
     Indication: PULMONARY HYPERTENSION
     Dosage: 20 MG, TID
     Route: 048
     Dates: start: 20151015
  2. ORENITRAM [Suspect]
     Active Substance: TREPROSTINIL
     Dosage: 17.5 MG, TID
     Route: 048
  3. ORENITRAM [Suspect]
     Active Substance: TREPROSTINIL
     Dosage: 15 MG, Q8H
     Route: 048

REACTIONS (9)
  - Diarrhoea [Unknown]
  - Apathy [Unknown]
  - Abdominal discomfort [Unknown]
  - Erythema [Unknown]
  - Flushing [Unknown]
  - Pulmonary arterial hypertension [Unknown]
  - Malaise [Not Recovered/Not Resolved]
  - Dyspnoea [Not Recovered/Not Resolved]
  - Asthenia [Unknown]

NARRATIVE: CASE EVENT DATE: 20151015
